FAERS Safety Report 9154024 (Version 1)
Quarter: 2013Q1

REPORT INFORMATION
  Report Type: Spontaneous
  Country: US (occurrence: None)
  Receive Date: 20130308
  Receipt Date: 20130308
  Transmission Date: 20140127
  Serious: Yes (Other)
  Sender: FDA-Public Use
  Company Number: None

PATIENT
  Age: 28 Year
  Sex: Female
  Weight: 77.11 kg

DRUGS (2)
  1. MIRENA [Suspect]
     Indication: CONTRACEPTION
     Dates: start: 20111115, end: 20130207
  2. MIRENA [Suspect]
     Indication: MENORRHAGIA
     Dates: start: 20111115, end: 20130207

REACTIONS (13)
  - Pain [None]
  - Muscle spasms [None]
  - Hot flush [None]
  - Erythema [None]
  - Arthralgia [None]
  - Back pain [None]
  - Hypoaesthesia [None]
  - Sleep disorder [None]
  - Dyspepsia [None]
  - Eructation [None]
  - Breast pain [None]
  - Breast swelling [None]
  - Device dislocation [None]
